FAERS Safety Report 12361861 (Version 19)
Quarter: 2018Q4

REPORT INFORMATION
  Report Type: Report from Study
  Country: US (occurrence: US)
  Receive Date: 20160512
  Receipt Date: 20181217
  Transmission Date: 20190204
  Serious: Yes (Hospitalization, Other)
  Sender: FDA-Public Use
  Company Number: US-SA-2016SA068283

PATIENT
  Age: 70 Year
  Sex: Female

DRUGS (6)
  1. ALIROCUMAB [Suspect]
     Active Substance: ALIROCUMAB
     Indication: TYPE IIA HYPERLIPIDAEMIA
     Dosage: 75 MG,QOW
     Route: 058
     Dates: start: 2017, end: 201810
  2. ALIROCUMAB PREFILLED PEN [Suspect]
     Active Substance: ALIROCUMAB
     Indication: TYPE IIA HYPERLIPIDAEMIA
     Dosage: 75 MG, QOW
     Dates: start: 2017, end: 201810
  3. BOOST [Suspect]
     Active Substance: DIETARY SUPPLEMENT
     Dosage: UNK UNK,UNK
     Route: 065
  4. ALIROCUMAB [Suspect]
     Active Substance: ALIROCUMAB
     Indication: TYPE V HYPERLIPIDAEMIA
     Dosage: 75 MG,QOW
     Route: 058
     Dates: start: 20160112
  5. ALIROCUMAB PREFILLED PEN [Suspect]
     Active Substance: ALIROCUMAB
     Indication: TYPE V HYPERLIPIDAEMIA
     Dosage: 75 MG, QOW
     Route: 058
     Dates: start: 20160112
  6. ALIROCUMAB [Suspect]
     Active Substance: ALIROCUMAB
     Indication: BLOOD CHOLESTEROL

REACTIONS (43)
  - Rash pruritic [Not Recovered/Not Resolved]
  - Muscle spasms [Unknown]
  - Fall [Unknown]
  - Skin injury [Unknown]
  - Erythema [Not Recovered/Not Resolved]
  - Swelling face [Unknown]
  - Gastric disorder [Unknown]
  - Swelling [Unknown]
  - Injection site reaction [Unknown]
  - Contusion [Unknown]
  - Underdose [Unknown]
  - Swelling [Not Recovered/Not Resolved]
  - Gastrointestinal pain [Not Recovered/Not Resolved]
  - Pain [Not Recovered/Not Resolved]
  - Weight decreased [Unknown]
  - Pruritus generalised [Not Recovered/Not Resolved]
  - Diarrhoea [Not Recovered/Not Resolved]
  - Pruritus [Not Recovered/Not Resolved]
  - Injection site swelling [Unknown]
  - Rash [Recovering/Resolving]
  - Drug ineffective [Unknown]
  - Pneumonia [Unknown]
  - Dyspnoea [Recovering/Resolving]
  - Hip arthroplasty [Recovering/Resolving]
  - Erythema [Unknown]
  - Blister [Not Recovered/Not Resolved]
  - Skin discolouration [Unknown]
  - Injection site pain [Unknown]
  - Rhinorrhoea [Unknown]
  - Injection site erythema [Not Recovered/Not Resolved]
  - Unevaluable event [Not Recovered/Not Resolved]
  - Hypersensitivity [Unknown]
  - Urticaria [Not Recovered/Not Resolved]
  - Injection site scar [Unknown]
  - Malaise [Unknown]
  - Injection site vesicles [Unknown]
  - Product packaging issue [Unknown]
  - Device issue [Unknown]
  - Abdominal distension [Not Recovered/Not Resolved]
  - Injection site pain [Not Recovered/Not Resolved]
  - Dyspnoea [Recovering/Resolving]
  - Burning sensation [Not Recovered/Not Resolved]
  - Dry skin [Unknown]

NARRATIVE: CASE EVENT DATE: 2016
